FAERS Safety Report 15830236 (Version 1)
Quarter: 2019Q1

REPORT INFORMATION
  Report Type: Spontaneous
  Country: TW (occurrence: TW)
  Receive Date: 20190115
  Receipt Date: 20190115
  Transmission Date: 20190417
  Serious: Yes (Hospitalization, Other)
  Sender: FDA-Public Use
  Company Number: TW-EX USA HOLDINGS-EXHL20190009

PATIENT
  Age: 45 Year
  Sex: Male

DRUGS (10)
  1. TACROLIMUS. [Suspect]
     Active Substance: TACROLIMUS
     Indication: TRANSPLANT REJECTION
     Dosage: UNKNOWN
     Route: 061
  2. SOLU-MEDROL [Suspect]
     Active Substance: METHYLPREDNISOLONE SODIUM SUCCINATE
     Dosage: 500 MG
     Route: 042
  3. COTRIMOXAZOLE [Concomitant]
     Active Substance: SULFAMETHOXAZOLE\TRIMETHOPRIM
     Indication: ANTIFUNGAL PROPHYLAXIS
     Dosage: 400 MG/80 MG
     Route: 065
  4. PREDNISONE. [Suspect]
     Active Substance: PREDNISONE
     Dosage: 60 MG - SLOWLY TAPERED UNTIL A DOSE OF 10 MG DAILY WAS REACHED
     Route: 048
  5. PROGRAF [Suspect]
     Active Substance: TACROLIMUS\TACROLIMUS ANHYDROUS
     Indication: IMMUNOSUPPRESSANT DRUG THERAPY
     Dosage: SLOW TITRATION
     Route: 065
  6. CLOBETASOL PROPIONATE. [Suspect]
     Active Substance: CLOBETASOL PROPIONATE
     Indication: TRANSPLANT REJECTION
     Dosage: UNKNOWN
     Route: 061
  7. SOLU-MEDROL [Suspect]
     Active Substance: METHYLPREDNISOLONE SODIUM SUCCINATE
     Dosage: TAPERED TO 250 MG
     Route: 042
  8. PREDNISONE. [Suspect]
     Active Substance: PREDNISONE
     Indication: IMMUNOSUPPRESSANT DRUG THERAPY
     Dosage: 10 MG
     Route: 048
  9. SOLU-MEDROL [Suspect]
     Active Substance: METHYLPREDNISOLONE SODIUM SUCCINATE
     Indication: IMMUNOSUPPRESSANT DRUG THERAPY
     Dosage: TAPERED TO 125 MG ON DAY 1 POST-TRANSPLANT
     Route: 042
  10. MYCOPHENOLATE MOFETIL. [Concomitant]
     Active Substance: MYCOPHENOLATE MOFETIL
     Indication: IMMUNOSUPPRESSANT DRUG THERAPY
     Dosage: 2 G
     Route: 065

REACTIONS (3)
  - Osteonecrosis [Recovered/Resolved]
  - Bone infarction [Recovered/Resolved]
  - Arthralgia [Recovered/Resolved]
